FAERS Safety Report 5782896-4 (Version None)
Quarter: 2008Q2

REPORT INFORMATION
  Report Type: 
  Country: None (occurrence: None)
  Receive Date: 20080624
  Receipt Date: 20080616
  Transmission Date: 20081010
  Serious: Yes (Other)
  Sender: FDA-Public Use
  Company Number: US-JNJFOC-20080604282

PATIENT
  Sex: Female
  Weight: 65.32 kg

DRUGS (3)
  1. TOPAMAX [Suspect]
     Indication: MIGRAINE PROPHYLAXIS
     Route: 048
  2. METOPROLOL [Concomitant]
     Indication: CARDIAC DISORDER
  3. ULTRAM [Concomitant]
     Indication: MIGRAINE PROPHYLAXIS

REACTIONS (2)
  - HEADACHE [None]
  - MULTIPLE SCLEROSIS [None]
